FAERS Safety Report 23760747 (Version 1)
Quarter: 2024Q2

REPORT INFORMATION
  Report Type: Spontaneous
  Country: FR (occurrence: FR)
  Receive Date: 20240419
  Receipt Date: 20240419
  Transmission Date: 20240716
  Serious: Yes (Life-Threatening)
  Sender: FDA-Public Use
  Company Number: FR-SUN PHARMACEUTICAL INDUSTRIES LTD-2024RR-443154

PATIENT
  Age: 54 Year
  Sex: Female
  Weight: 79 kg

DRUGS (13)
  1. NOREPINEPHRINE [Interacting]
     Active Substance: NOREPINEPHRINE\NOREPINEPHRINE BITARTRATE
     Indication: Haemodynamic instability
     Dosage: 0.28 MICROGRAM/KILOGRAM, 1DOSE/MIN
     Route: 040
     Dates: start: 20240104, end: 20240106
  2. NOREPINEPHRINE [Interacting]
     Active Substance: NOREPINEPHRINE\NOREPINEPHRINE BITARTRATE
     Dosage: 0.06 MICROGRAM/KILOGRAM, 1DOSE/MIN
     Route: 040
     Dates: start: 20240111, end: 20240113
  3. PROPOFOL [Suspect]
     Active Substance: PROPOFOL
     Indication: Sedation
     Dosage: 6000 MILLIGRAM, DAILY, 250MG/HOUR
     Route: 040
     Dates: start: 20240110, end: 20240113
  4. PROPOFOL [Suspect]
     Active Substance: PROPOFOL
     Dosage: 7200 MILLIGRAM, DAILY, 300MG/HOUR
     Route: 065
     Dates: start: 20240114, end: 20240116
  5. PROPOFOL [Suspect]
     Active Substance: PROPOFOL
     Dosage: 7200 MILLIGRAM, DAILY, 300MG/HOUR
     Route: 065
     Dates: start: 20240104, end: 20240109
  6. PROPOFOL [Suspect]
     Active Substance: PROPOFOL
     Dosage: 6000 MILLIGRAM, DAILY, 250MG/HOUR
     Route: 065
     Dates: start: 20240117, end: 20240118
  7. METHYLPREDNISOLONE [Interacting]
     Active Substance: METHYLPREDNISOLONE
     Indication: Respiratory distress
     Dosage: 60 MILLIGRAM, DAILY
     Route: 040
     Dates: start: 20240104, end: 20240116
  8. ZOMETA [Concomitant]
     Active Substance: ZOLEDRONIC ACID
     Indication: Hypercalcaemia
     Dosage: 4000 INTERNATIONAL UNIT, DAILY
     Route: 058
     Dates: start: 20240104
  9. AMOXICILLIN [Concomitant]
     Active Substance: AMOXICILLIN
     Indication: Infection
     Dosage: 1 GRAM, BID
     Route: 040
     Dates: start: 20240104, end: 20240109
  10. ENOXAPARIN SODIUM [Concomitant]
     Active Substance: ENOXAPARIN SODIUM
     Indication: Thrombosis prophylaxis
     Dosage: 4000 INTERNATIONAL UNIT, DAILY
     Route: 058
     Dates: start: 20240104
  11. ATRACURIUM [Concomitant]
     Active Substance: ATRACURIUM
     Indication: Muscle tightness
     Dosage: 90 MILLIGRAM, Q1H
     Route: 040
     Dates: start: 20240115
  12. ATRACURIUM [Concomitant]
     Active Substance: ATRACURIUM
     Dosage: 50 MILLIGRAM, Q1H
     Route: 040
     Dates: start: 20240104, end: 20240109
  13. ATRACURIUM [Concomitant]
     Active Substance: ATRACURIUM
     Dosage: 60 MILLIGRAM, Q1H
     Route: 040
     Dates: start: 20240110, end: 20240114

REACTIONS (1)
  - Propofol infusion syndrome [Not Recovered/Not Resolved]

NARRATIVE: CASE EVENT DATE: 20240119
